FAERS Safety Report 12161254 (Version 1)
Quarter: 2016Q1

REPORT INFORMATION
  Report Type: Spontaneous
  Country: IT (occurrence: IT)
  Receive Date: 20160308
  Receipt Date: 20160308
  Transmission Date: 20160526
  Serious: Yes (Other)
  Sender: FDA-Public Use
  Company Number: IT-ACTAVIS-2016-04129

PATIENT
  Age: 48 Year
  Sex: Female

DRUGS (1)
  1. CLOBETASOL (UNKNOWN) [Suspect]
     Active Substance: CLOBETASOL
     Indication: LICHEN SCLEROSUS
     Dosage: UNK
     Route: 065

REACTIONS (2)
  - Ulcer [Unknown]
  - Infection [Unknown]
